FAERS Safety Report 6602180-6 (Version None)
Quarter: 2010Q1

REPORT INFORMATION
  Report Type: 
  Country: None (occurrence: None)
  Receive Date: 20100225
  Receipt Date: 20100212
  Transmission Date: 20100710
  Serious: Yes (Death, Hospitalization, Other)
  Sender: FDA-Public Use
  Company Number: GB-MEDIMMUNE-MEDI-0010090

PATIENT
  Sex: Male
  Weight: 8.2 kg

DRUGS (1)
  1. SYNAGIS [Suspect]
     Route: 030
     Dates: start: 20091001, end: 20091215

REACTIONS (4)
  - CARDIAC ARREST [None]
  - ILL-DEFINED DISORDER [None]
  - MALAISE [None]
  - PYREXIA [None]
